FAERS Safety Report 24283303 (Version 2)
Quarter: 2024Q3

REPORT INFORMATION
  Report Type: Spontaneous
  Country: CN (occurrence: CN)
  Receive Date: 20240904
  Receipt Date: 20240906
  Transmission Date: 20241017
  Serious: Yes (Other)
  Sender: BAUSCH AND LOMB
  Company Number: CN-BAUSCH-BL-2024-013176

PATIENT
  Age: 52 Year
  Sex: Female

DRUGS (7)
  1. DEXAMETHASONE [Suspect]
     Active Substance: DEXAMETHASONE
     Indication: Langerhans cell sarcoma
     Route: 065
     Dates: start: 20230717, end: 20230721
  2. VINDESINE [Suspect]
     Active Substance: VINDESINE
     Indication: Langerhans cell sarcoma
     Dosage: ON DAY 1
     Route: 065
     Dates: start: 20230717, end: 2023
  3. CYCLOPHOSPHAMIDE [Suspect]
     Active Substance: CYCLOPHOSPHAMIDE
     Indication: Langerhans cell sarcoma
     Dosage: ON DAY 1
     Route: 065
     Dates: start: 20230717, end: 2023
  4. ETOPOSIDE [Suspect]
     Active Substance: ETOPOSIDE
     Indication: Langerhans cell sarcoma
     Dosage: 0.1 G/M2 ON DAYS 1-4
     Route: 065
     Dates: start: 20230717, end: 20230720
  5. NOVOMIX 30 [INSULIN ASPART;INSULIN ASPART PROTAMINE] [Concomitant]
     Indication: Type 2 diabetes mellitus
     Dosage: 30 INJECTIONS (10 U IN THE MORNING AND 10 U IN THE EVENING)
  6. DESMOPRESSIN ACETATE [Concomitant]
     Active Substance: DESMOPRESSIN ACETATE
     Indication: Diabetes insipidus
     Route: 048
     Dates: start: 202307
  7. LEVOTHYROXINE SODIUM [Concomitant]
     Active Substance: LEVOTHYROXINE SODIUM
     Indication: Hypothyroidism
     Route: 048
     Dates: start: 202307

REACTIONS (2)
  - Myelosuppression [Recovered/Resolved]
  - Therapy partial responder [Unknown]

NARRATIVE: CASE EVENT DATE: 20230101
